FAERS Safety Report 8343668-X (Version None)
Quarter: 2012Q2

REPORT INFORMATION
  Report Type: 
  Country: None (occurrence: None)
  Receive Date: 20120508
  Receipt Date: 20120424
  Transmission Date: 20120825
  Serious: Yes (Other)
  Sender: FDA-Public Use
  Company Number: JP-AMGEN-JPNSP2012008782

PATIENT
  Age: 31 Year
  Sex: Female
  Weight: 55 kg

DRUGS (8)
  1. FOLIAMIN [Concomitant]
     Indication: PROPHYLAXIS
     Dosage: 5 MG/DAY
     Route: 048
     Dates: start: 20110413
  2. METHOTREXATE [Suspect]
     Indication: RHEUMATOID ARTHRITIS
     Dosage: UNK
     Route: 048
     Dates: start: 20091201, end: 20100301
  3. METHOTREXATE [Suspect]
     Dosage: 14 MG, WEEKLY
     Route: 048
     Dates: start: 20110413
  4. ISONIAZID [Concomitant]
     Indication: PULMONARY TUBERCULOSIS
     Dosage: 300 MG/DAY
     Route: 048
     Dates: start: 20111130
  5. ENBREL [Suspect]
     Indication: RHEUMATOID ARTHRITIS
     Dosage: 50 MG, WEEKLY
     Route: 058
     Dates: start: 20111226, end: 20120203
  6. CEFDINIR [Concomitant]
     Dosage: UNK
  7. METHOTREXATE [Suspect]
     Dosage: 10 MG, WEEKLY
     Route: 048
  8. PYDOXAL [Concomitant]
     Indication: PROPHYLAXIS
     Dosage: 20 MG/DAY
     Route: 048
     Dates: start: 20111130

REACTIONS (2)
  - CELLULITIS [None]
  - ARTHRALGIA [None]
